FAERS Safety Report 9122467 (Version 1)
Quarter: 2013Q1

REPORT INFORMATION
  Report Type: Spontaneous
  Country: GB (occurrence: GB)
  Receive Date: 20130227
  Receipt Date: 20130227
  Transmission Date: 20140127
  Serious: Yes (Other)
  Sender: FDA-Public Use
  Company Number: GB-BRISTOL-MYERS SQUIBB COMPANY-17408360

PATIENT
  Age: 78 Year
  Sex: Male
  Weight: 95 kg

DRUGS (9)
  1. METFORMIN HCL [Suspect]
     Indication: TYPE 2 DIABETES MELLITUS
     Dosage: TABLET,500 MG(1ST WEEK OF TITRATION),1000MG(2ND WEEK OF TITRATION),1500MG(3RD WEEK OF TITATION)
     Dates: start: 20121010
  2. CO-CODAMOL [Concomitant]
  3. FELODIPINE [Concomitant]
     Route: 048
     Dates: start: 20130211
  4. FERROUS FUMARATE [Concomitant]
  5. OMEPRAZOLE [Concomitant]
     Indication: PROPHYLAXIS AGAINST GASTROINTESTINAL ULCER
  6. RAMIPRIL [Concomitant]
     Dates: start: 20120812
  7. SIMVASTATIN [Concomitant]
     Dates: start: 20121112
  8. PROPRANOLOL [Concomitant]
  9. FELODIPINE [Concomitant]
     Route: 048
     Dates: start: 20130211

REACTIONS (2)
  - Anorectal discomfort [Recovered/Resolved]
  - Haemorrhage [Recovered/Resolved]
